FAERS Safety Report 22048194 (Version 1)
Quarter: 2023Q1

REPORT INFORMATION
  Report Type: Spontaneous
  Country: US (occurrence: US)
  Receive Date: 20230301
  Receipt Date: 20230301
  Transmission Date: 20230418
  Serious: Yes (Other)
  Sender: FDA-Public Use
  Company Number: US-BAXTER-2023BAX013851

PATIENT

DRUGS (37)
  1. CYCLOPHOSPHAMIDE [Suspect]
     Active Substance: CYCLOPHOSPHAMIDE
     Indication: Plasma cell myeloma
     Dosage: UNK
     Route: 065
  2. CYCLOPHOSPHAMIDE [Suspect]
     Active Substance: CYCLOPHOSPHAMIDE
     Dosage: AS A PART OF THIRD LINE TREATMENT VDPACE PLUS SCH
     Route: 065
  3. VELCADE [Suspect]
     Active Substance: BORTEZOMIB
     Indication: Plasma cell myeloma
     Dosage: AS A PART OF FIRST LINE
     Route: 065
     Dates: start: 20210420
  4. VELCADE [Suspect]
     Active Substance: BORTEZOMIB
     Dosage: AS A PART OF CYCLE 3
     Route: 065
     Dates: start: 20210615
  5. VELCADE [Suspect]
     Active Substance: BORTEZOMIB
     Dosage: AS A PART OF CYCLE 5
     Route: 065
     Dates: start: 20210713
  6. VELCADE [Suspect]
     Active Substance: BORTEZOMIB
     Dosage: AS A PART OF THIRD LINE TREATMENT VDPACE PLUS SCH
     Route: 065
  7. VELCADE [Suspect]
     Active Substance: BORTEZOMIB
     Dosage: AS A PART OF DRD (DARATUMUMAB PLUS REVLIMID PLUS DEXAMETHASONE) CONSOLIDATION
     Route: 065
     Dates: start: 20220817
  8. DEXAMETHASONE [Suspect]
     Active Substance: DEXAMETHASONE
     Indication: Plasma cell myeloma
     Dosage: AS A PART OF FIRST LINE TREATMENT; 40 MILLIGRAM
     Route: 065
     Dates: start: 20210420
  9. DEXAMETHASONE [Suspect]
     Active Substance: DEXAMETHASONE
     Dosage: AS A PART OF FIRST LINE TREATMENT
     Route: 065
     Dates: start: 20220316, end: 20220319
  10. DEXAMETHASONE [Suspect]
     Active Substance: DEXAMETHASONE
     Dosage: AS A PART OF CYCLE 3
     Route: 065
     Dates: start: 20210615
  11. DEXAMETHASONE [Suspect]
     Active Substance: DEXAMETHASONE
     Dosage: AS A PART OF CYCLE 5
     Route: 065
     Dates: start: 20210713
  12. DEXAMETHASONE [Suspect]
     Active Substance: DEXAMETHASONE
     Dosage: AS A PART OF SECOND LINE TREATMENT;CYCLE 1
     Route: 065
     Dates: start: 20211019
  13. DEXAMETHASONE [Suspect]
     Active Substance: DEXAMETHASONE
     Dosage: AS A PART OF CYCLE 2; KRD (CARFILZOMIB AND LENALIDOMIDE PLUS DEXAMETHASONE)
     Route: 065
     Dates: start: 20211116
  14. DEXAMETHASONE [Suspect]
     Active Substance: DEXAMETHASONE
     Dosage: AS A PART OF CYCLE 3; KD (CARFILZOMIB PLUS DEXAMETHASONE)
     Route: 065
     Dates: start: 20211215
  15. DEXAMETHASONE [Suspect]
     Active Substance: DEXAMETHASONE
     Dosage: AS A PART OF FOURTH LINE TREATMENT; DARA PLUS KRD
     Route: 065
     Dates: start: 20211004
  16. DEXAMETHASONE [Suspect]
     Active Substance: DEXAMETHASONE
     Dosage: AS A PART OF SIXTH LINE TREATMENT; 40 MILLIGRAM
     Route: 065
     Dates: start: 20221217, end: 20221220
  17. DEXAMETHASONE [Suspect]
     Active Substance: DEXAMETHASONE
     Dosage: AS A PART OF SIXTH LINE TREATMENT; 40 MILLIGRAM
     Route: 065
     Dates: start: 20221225, end: 20221228
  18. DEXAMETHASONE [Suspect]
     Active Substance: DEXAMETHASONE
     Dosage: AS A PART OF THIRD LINE TREATMENT VDPACE PLUS SCH
     Route: 065
  19. DEXAMETHASONE [Suspect]
     Active Substance: DEXAMETHASONE
     Dosage: AS A PART OF DRD (DARATUMUMAB PLUS REVLIMID PLUS DEXAMETHASONE) CONSOLIDATION
     Route: 065
     Dates: start: 20220817
  20. DARATUMUMAB [Suspect]
     Active Substance: DARATUMUMAB
     Indication: Plasma cell myeloma
     Dosage: UNK
     Route: 065
     Dates: start: 20210613
  21. DARATUMUMAB [Suspect]
     Active Substance: DARATUMUMAB
     Dosage: AS A PART OF FOURTH LINE TREATMENT; DARA PLUS KRD
     Route: 065
     Dates: start: 20211004
  22. DARATUMUMAB [Suspect]
     Active Substance: DARATUMUMAB
     Dosage: AS A PART OF DRD (DARATUMUMAB PLUS REVLIMID PLUS DEXAMETHASONE) CONSOLIDATION
     Route: 065
     Dates: start: 20220817
  23. CISPLATIN [Suspect]
     Active Substance: CISPLATIN
     Indication: Plasma cell myeloma
     Dosage: UNK
     Route: 065
  24. CISPLATIN [Suspect]
     Active Substance: CISPLATIN
     Dosage: AS A PART OF THIRD LINE TREATMENT VDPACE PLUS SCH
     Route: 065
  25. ADRIAMYCIN [Suspect]
     Active Substance: DOXORUBICIN HYDROCHLORIDE
     Indication: Plasma cell myeloma
     Dosage: UNK
     Route: 065
  26. ADRIAMYCIN [Suspect]
     Active Substance: DOXORUBICIN HYDROCHLORIDE
     Dosage: AS A PART OF THIRD LINE TREATMENT VDPACE PLUS SCH
     Route: 065
  27. ETOPOSIDE [Suspect]
     Active Substance: ETOPOSIDE
     Indication: Plasma cell myeloma
     Dosage: UNK
     Route: 065
  28. ETOPOSIDE [Suspect]
     Active Substance: ETOPOSIDE
     Dosage: AS A PART OF THIRD LINE TREATMENT VDPACE PLUS SCH
     Route: 065
  29. REVLIMID [Suspect]
     Active Substance: LENALIDOMIDE
     Indication: Plasma cell myeloma
     Dosage: AS A PART OF CYCLE 2; KRD (CARFILZOMIB AND LENALIDOMIDE PLUS DEXAMETHASONE)
     Route: 065
     Dates: start: 20211116
  30. REVLIMID [Suspect]
     Active Substance: LENALIDOMIDE
     Dosage: AS A PART OF FOURTH LINE TREATMENT; DARA PLUS KRD
     Route: 065
     Dates: start: 20211004
  31. CARFILZOMIB [Suspect]
     Active Substance: CARFILZOMIB
     Indication: Plasma cell myeloma
     Dosage: AS A PART OF SECOND LINE TREATMENT, CYCLE 1
     Route: 065
     Dates: start: 20221019
  32. CARFILZOMIB [Suspect]
     Active Substance: CARFILZOMIB
     Dosage: AS A PART OF CYCLE 2; KRD (CARFILZOMIB AND LENALIDOMIDE PLUS DEXAMETHASONE)
     Route: 065
     Dates: start: 20211116
  33. CARFILZOMIB [Suspect]
     Active Substance: CARFILZOMIB
     Dosage: AS A PART OF CYCLE 3; KD (CARFILZOMIB PLUS DEXAMETHASONE)
     Route: 065
     Dates: start: 20211215
  34. CARFILZOMIB [Suspect]
     Active Substance: CARFILZOMIB
     Dosage: AS A PART OF FOURTH LINE TREATMENT; DARA PLUS KRD
     Route: 065
     Dates: start: 20211004
  35. MELPHALAN [Suspect]
     Active Substance: MELPHALAN
     Indication: Plasma cell myeloma
     Dosage: UNK
     Route: 065
     Dates: start: 20220302
  36. MELPHALAN [Suspect]
     Active Substance: MELPHALAN
     Dosage: AS A PART OF SEVENTH LINE TREATMENT CONDITIONING; 100/ MEL
     Route: 065
     Dates: start: 20230103, end: 20230104
  37. BICNU [Suspect]
     Active Substance: CARMUSTINE
     Indication: Plasma cell myeloma
     Dosage: AS A PART OF SEVENTH LINE TREATMENT; (BIS-CHLOROETHYLNITROSOUREA, CARMUSTINE)
     Route: 065
     Dates: start: 20230103, end: 20230104

REACTIONS (1)
  - Plasma cell myeloma [Unknown]
